FAERS Safety Report 6712826-X (Version None)
Quarter: 2010Q2

REPORT INFORMATION
  Report Type: 
  Country: None (occurrence: None)
  Receive Date: 20100506
  Receipt Date: 20090528
  Transmission Date: 20101027
  Serious: No
  Sender: FDA-Public Use
  Company Number: A0787122A

PATIENT
  Age: 10 Year
  Sex: Female

DRUGS (2)
  1. AUGMENTIN [Suspect]
     Dosage: 1TSP THREE TIMES PER DAY
     Route: 048
     Dates: start: 20090526
  2. BACTROBAN [Concomitant]

REACTIONS (3)
  - DRUG ADMINISTRATION ERROR [None]
  - INCORRECT STORAGE OF DRUG [None]
  - RASH PUSTULAR [None]
